FAERS Safety Report 9355826 (Version 1)
Quarter: 2013Q2

REPORT INFORMATION
  Report Type: Spontaneous
  Country: US (occurrence: US)
  Receive Date: 20130619
  Receipt Date: 20130619
  Transmission Date: 20140414
  Serious: Yes (Other)
  Sender: FDA-Public Use
  Company Number: US-BAYER-2013-074726

PATIENT
  Sex: Female

DRUGS (1)
  1. BAYER ASPIRIN REGIMEN REGULAR 325 MG STRENGTH [Suspect]
     Indication: ARTHRITIS
     Dosage: 4 DF, QID
     Route: 048
     Dates: end: 1995

REACTIONS (4)
  - Gingival bleeding [None]
  - Drug prescribing error [None]
  - Overdose [None]
  - Gastrointestinal pain [None]
